FAERS Safety Report 7079611-3 (Version None)
Quarter: 2010Q4

REPORT INFORMATION
  Report Type: 
  Country: None (occurrence: None)
  Receive Date: 20101102
  Receipt Date: 20101019
  Transmission Date: 20110411
  Serious: Yes (Other)
  Sender: FDA-Public Use
  Company Number: PHHY2010US59795

PATIENT
  Sex: Female
  Weight: 95 kg

DRUGS (9)
  1. TEGRETOL-XR [Suspect]
     Indication: EPILEPSY
     Dosage: 200 MG, BID
     Route: 048
     Dates: start: 20060101
  2. TEGRETOL-XR [Suspect]
     Dosage: 2 DF, BID
     Route: 048
     Dates: start: 20100803, end: 20100905
  3. TEGRETOL [Suspect]
     Dosage: 1 MG, UNK
     Dates: start: 20000101
  4. TEGRETOL [Suspect]
     Dosage: UNK
     Dates: start: 20060101
  5. LYRICA [Concomitant]
     Indication: EPILEPSY
     Dosage: 300 MG, BID
     Dates: start: 20070101, end: 20070427
  6. TOPAMAX [Concomitant]
     Dosage: 200 MG, BID
     Dates: start: 20070803, end: 20090708
  7. LAMICTAL [Concomitant]
     Dosage: 200 MG, BID
     Route: 048
     Dates: start: 20090301, end: 20100921
  8. KEPPRA [Concomitant]
     Dosage: 1250 MG, BID
     Route: 048
     Dates: start: 20070701, end: 20081027
  9. PHENTERMINE [Concomitant]
     Dosage: UNK

REACTIONS (11)
  - ANXIETY [None]
  - AURA [None]
  - CONVULSION [None]
  - COORDINATION ABNORMAL [None]
  - DEPRESSION [None]
  - ENCEPHALOPATHY [None]
  - FEELING ABNORMAL [None]
  - HEADACHE [None]
  - MALAISE [None]
  - REFLEXES ABNORMAL [None]
  - SEDATION [None]
